FAERS Safety Report 5656214-6 (Version None)
Quarter: 2008Q1

REPORT INFORMATION
  Report Type: 
  Country: None (occurrence: None)
  Receive Date: 20080305
  Receipt Date: 20080221
  Transmission Date: 20080703
  Serious: Yes (Life-Threatening, Hospitalization, Other)
  Sender: FDA-Public Use
  Company Number: 2008VX000308

PATIENT
  Age: 29 Year
  Sex: Female

DRUGS (8)
  1. FLURAZEPAM HCL [Suspect]
     Indication: SCHIZOPHRENIA
  2. PROMAZINE HYDROCHLORIDE [Concomitant]
  3. OLANZAPINE [Concomitant]
  4. FLUPHENAZINE [Concomitant]
  5. DIAZEPAM [Concomitant]
  6. BIPERIDEN HYDROCHLORIDE TAB [Concomitant]
  7. CARBAMAZEPINE [Concomitant]
  8. FLURAZEPAM [Concomitant]

REACTIONS (9)
  - CULTURE URINE POSITIVE [None]
  - DRUG HYPERSENSITIVITY [None]
  - DYSURIA [None]
  - ENTEROBACTER INFECTION [None]
  - KLEBSIELLA INFECTION [None]
  - PSEUDOMONAS INFECTION [None]
  - TOXIC EPIDERMAL NECROLYSIS [None]
  - URINARY RETENTION [None]
  - WOUND INFECTION STAPHYLOCOCCAL [None]
